FAERS Safety Report 22362651 (Version 2)
Quarter: 2023Q2

REPORT INFORMATION
  Report Type: Spontaneous
  Country: JP (occurrence: JP)
  Receive Date: 20230524
  Receipt Date: 20230608
  Transmission Date: 20230721
  Serious: No
  Sender: FDA-Public Use
  Company Number: JP-Eisai-202301668_LEN-EC_P_1

PATIENT
  Age: 68 Year
  Sex: Female

DRUGS (3)
  1. LENVIMA [Suspect]
     Active Substance: LENVATINIB
     Indication: Endometrial cancer
     Route: 048
     Dates: start: 20230427, end: 20230505
  2. KEYTRUDA [Suspect]
     Active Substance: PEMBROLIZUMAB
     Indication: Endometrial cancer
     Route: 041
     Dates: start: 20230427, end: 202305
  3. METOCLOPRAMIDE [Concomitant]
     Active Substance: METOCLOPRAMIDE
     Indication: Product used for unknown indication
     Dosage: UNKNOWN DOSE AND FREQUENCY
     Route: 048
     Dates: start: 20230427

REACTIONS (2)
  - Nausea [Recovered/Resolved]
  - Dehydration [Unknown]

NARRATIVE: CASE EVENT DATE: 20230101
